FAERS Safety Report 9159436 (Version 4)
Quarter: 2013Q3

REPORT INFORMATION
  Report Type: Spontaneous
  Country: US (occurrence: None)
  Receive Date: 20130214
  Receipt Date: 20130725
  Transmission Date: 20140515
  Serious: Yes (Life-Threatening, Hospitalization)
  Sender: FDA-Public Use
  Company Number: AUR-APL-2013-01381

PATIENT
  Age: 57 Year
  Sex: Male
  Weight: 59.9 kg

DRUGS (5)
  1. LISINOPRIL (LISINOPRIL) [Suspect]
     Indication: PRODUCT USED FOR UNKNOWN INDICATION
     Route: 048
     Dates: start: 20000101, end: 20130116
  2. CELECOXIB\IBUPROFEN\NAPROXEN\PLACEBO [Suspect]
     Indication: OSTEOARTHRITIS
     Dosage: MOST RECENT DOSE BEFORE THE EVENT: HIGH
     Route: 048
     Dates: start: 20121127, end: 20130116
  3. NEXIUM (ESOMEPRAZOLE MAGNESIUM) [Concomitant]
  4. DILTIAZEM [Concomitant]
  5. CITALOPRAM (CITALOPRAM) [Concomitant]

REACTIONS (1)
  - Anaphylactic reaction [None]
